FAERS Safety Report 25026581 (Version 1)
Quarter: 2025Q1

REPORT INFORMATION
  Report Type: Spontaneous
  Country: NL (occurrence: NL)
  Receive Date: 20250301
  Receipt Date: 20250301
  Transmission Date: 20250409
  Serious: Yes (Other)
  Sender: STRIDES
  Company Number: NL-STRIDES ARCOLAB LIMITED-2025SP002575

PATIENT
  Age: 5 Year
  Sex: Female

DRUGS (15)
  1. ETOPOSIDE [Suspect]
     Active Substance: ETOPOSIDE
     Indication: Symptom recurrence
     Route: 065
  2. ETOPOSIDE [Suspect]
     Active Substance: ETOPOSIDE
     Route: 065
  3. DOXORUBICIN [Suspect]
     Active Substance: DOXORUBICIN
     Indication: Nephroblastoma
     Route: 065
  4. DOXORUBICIN [Suspect]
     Active Substance: DOXORUBICIN
     Indication: Metastases to lung
  5. VINCRISTINE [Suspect]
     Active Substance: VINCRISTINE
     Indication: Nephroblastoma
     Route: 065
  6. VINCRISTINE [Suspect]
     Active Substance: VINCRISTINE
     Indication: Metastases to lung
     Route: 065
  7. VINCRISTINE [Suspect]
     Active Substance: VINCRISTINE
     Route: 065
  8. ACTINOMYCIN D [Suspect]
     Active Substance: DACTINOMYCIN
     Indication: Nephroblastoma
     Route: 065
  9. ACTINOMYCIN D [Suspect]
     Active Substance: DACTINOMYCIN
     Indication: Metastases to lung
     Route: 065
  10. ACTINOMYCIN D [Suspect]
     Active Substance: DACTINOMYCIN
     Route: 065
  11. IFOSFAMIDE [Suspect]
     Active Substance: IFOSFAMIDE
     Indication: Symptom recurrence
     Route: 065
  12. CARBOPLATIN [Suspect]
     Active Substance: CARBOPLATIN
     Indication: Symptom recurrence
     Route: 065
  13. CARBOPLATIN [Suspect]
     Active Substance: CARBOPLATIN
     Route: 065
  14. CYCLOPHOSPHAMIDE [Suspect]
     Active Substance: CYCLOPHOSPHAMIDE
     Indication: Symptom recurrence
     Route: 065
  15. MELPHALAN [Suspect]
     Active Substance: MELPHALAN
     Indication: Product used for unknown indication
     Route: 065

REACTIONS (3)
  - Tubulointerstitial nephritis [Unknown]
  - Chronic kidney disease [Unknown]
  - Off label use [Unknown]
